FAERS Safety Report 12766794 (Version 1)
Quarter: 2016Q3

REPORT INFORMATION
  Report Type: Spontaneous
  Country: US (occurrence: US)
  Receive Date: 20160915
  Receipt Date: 20160915
  Transmission Date: 20161109
  Serious: No
  Sender: FDA-Public Use
  Company Number: None

PATIENT
  Age: 55 Year
  Sex: Female

DRUGS (1)
  1. ORENCIA [Suspect]
     Active Substance: ABATACEPT
     Indication: RHEUMATOID ARTHRITIS
     Dosage: 125MG/ML ONCE PER WEEK SUBCUTANEOUSLY
     Route: 058
     Dates: start: 20130121, end: 20160704

REACTIONS (2)
  - Fungal infection [None]
  - Therapy cessation [None]

NARRATIVE: CASE EVENT DATE: 20160713
